FAERS Safety Report 24328887 (Version 1)
Quarter: 2024Q3

REPORT INFORMATION
  Report Type: Report from Study
  Country: KR (occurrence: KR)
  Receive Date: 20240917
  Receipt Date: 20240917
  Transmission Date: 20241016
  Serious: Yes (Other)
  Sender: JOHNSON AND JOHNSON
  Company Number: KR-JNJFOC-20240877444

PATIENT

DRUGS (7)
  1. LAZERTINIB [Suspect]
     Active Substance: LAZERTINIB
     Indication: Non-small cell lung cancer
     Dosage: CONTINUOUSLY IN 21-DAY CYCLE
     Route: 048
  2. LAZERTINIB [Suspect]
     Active Substance: LAZERTINIB
     Dosage: CONTINUOUSLY IN 21-DAY CYCLE
     Route: 048
  3. LAZERTINIB [Suspect]
     Active Substance: LAZERTINIB
     Dosage: CONTINUOUSLY IN 21-DAY CYCLE
     Route: 048
  4. LAZERTINIB [Suspect]
     Active Substance: LAZERTINIB
     Dosage: CONTINUOUSLY IN 21-DAY CYCLE
     Route: 048
  5. LAZERTINIB [Suspect]
     Active Substance: LAZERTINIB
     Dosage: CONTINUOUSLY IN 21-DAY CYCLE
     Route: 048
  6. LAZERTINIB [Suspect]
     Active Substance: LAZERTINIB
     Dosage: CONTINUOUSLY IN 21-DAY CYCLE
     Route: 048
  7. LAZERTINIB [Suspect]
     Active Substance: LAZERTINIB
     Dosage: CONTINUOUSLY IN 21-DAY CYCLE
     Route: 048

REACTIONS (4)
  - Electrocardiogram QT prolonged [Unknown]
  - Cardiac failure [Unknown]
  - Ejection fraction decreased [Unknown]
  - Off label use [Unknown]
